FAERS Safety Report 7710171 (Version 3)
Quarter: 2012Q4

REPORT INFORMATION
  Report Type: Report from Study
  Country: None (occurrence: US)
  Receive Date: 20101214
  Receipt Date: 20120921
  Transmission Date: 20130627
  Serious: Yes (Life-Threatening, Hospitalization)
  Sender: FDA-Public Use
  Company Number: US-ABBOTT-10P-163-0691226-00

PATIENT
  Age: 30 Year
  Sex: Male

DRUGS (6)
  1. RITONAVIR SOFT GELATIN CAPSULES [Suspect]
     Indication: HIV INFECTION
     Route: 048
  2. EMTRICITABINE W/TENOFOVIR DISOPROXIL FUMARATE [Concomitant]
     Indication: HIV INFECTION
  3. ATAZANAVIR SULFATE [Concomitant]
     Indication: HIV INFECTION
  4. TRAMADOL [Concomitant]
     Indication: PAIN
     Route: 048
     Dates: end: 20101204
  5. TIZANIDINE [Concomitant]
     Indication: MUSCLE RELAXANT THERAPY
     Route: 048
     Dates: end: 20101204
  6. TYLENOL EXTRA STRENGTH [Concomitant]
     Indication: NASOPHARYNGITIS
     Route: 048
     Dates: end: 20101203

REACTIONS (11)
  - Chest pain [Recovered/Resolved]
  - Nasopharyngitis [None]
  - Paraesthesia [None]
  - Chest discomfort [None]
  - Pain in extremity [None]
  - Troponin increased [None]
  - Dyspepsia [None]
  - Acute myocardial infarction [None]
  - Pulmonary fibrosis [None]
  - Atelectasis [None]
  - Lymphadenopathy [None]
